FAERS Safety Report 5394912-2 (Version None)
Quarter: 2007Q3

REPORT INFORMATION
  Report Type: 
  Country: None (occurrence: None)
  Receive Date: 20070720
  Receipt Date: 20070702
  Transmission Date: 20080115
  Serious: Yes (Other)
  Sender: FDA-Public Use
  Company Number: 2007RR-08368

PATIENT
  Age: 32 Year
  Sex: Male

DRUGS (2)
  1. CLINDAMYCIN HCL [Suspect]
     Dosage: 300 MG, QD,
  2. FLUVOXAMINE MALEATE [Suspect]
     Dosage: 100 MG,; 200 MG,

REACTIONS (10)
  - ANHEDONIA [None]
  - ASTHENIA [None]
  - CLUSTER HEADACHE [None]
  - CYCLOTHYMIC DISORDER [None]
  - DEPRESSION [None]
  - DISEASE RECURRENCE [None]
  - DISTURBANCE IN ATTENTION [None]
  - DRUG LEVEL BELOW THERAPEUTIC [None]
  - DYSKINESIA [None]
  - FURUNCLE [None]
